FAERS Safety Report 8866686 (Version 1)
Quarter: 2012Q4

REPORT INFORMATION
  Report Type: 
  Country: US (occurrence: US)
  Receive Date: 20121025
  Receipt Date: 20121025
  Transmission Date: 20130627
  Serious: No
  Sender: FDA-Public Use
  Company Number: US-AMGEN-USASP2012013019

PATIENT
  Age: 33 Year
  Sex: Female

DRUGS (6)
  1. ENBREL [Suspect]
     Indication: PRODUCT USED FOR UNKNOWN INDICATION
     Dosage: 50 mg, qwk
     Route: 058
  2. SERTRALINE [Concomitant]
     Dosage: 50 mg, UNK
  3. LISINOPRIL [Concomitant]
     Dosage: 40 mg, UNK
  4. ALBUTEROL                          /00139501/ [Concomitant]
     Dosage: 90 mug, UNK
  5. ADVAIR [Concomitant]
     Dosage: UNK
  6. PROVIGIL [Concomitant]
     Dosage: 200 mg, UNK

REACTIONS (3)
  - Skin exfoliation [Not Recovered/Not Resolved]
  - Skin disorder [Not Recovered/Not Resolved]
  - Erythema [Not Recovered/Not Resolved]
